FAERS Safety Report 12803147 (Version 1)
Quarter: 2016Q4

REPORT INFORMATION
  Report Type: Spontaneous
  Country: US (occurrence: US)
  Receive Date: 20161003
  Receipt Date: 20161003
  Transmission Date: 20170207
  Serious: No
  Sender: FDA-Public Use
  Company Number: US-009507513-1609USA006640

PATIENT
  Age: 60 Year
  Sex: Female

DRUGS (6)
  1. PRINIVIL [Suspect]
     Active Substance: LISINOPRIL
     Indication: BLOOD PRESSURE ABNORMAL
     Dosage: 10 MG, UNK
     Route: 048
     Dates: start: 201403
  2. PRINIVIL [Suspect]
     Active Substance: LISINOPRIL
     Dosage: 5 MG, UNK
     Route: 048
  3. GLIMEPIRIDE. [Concomitant]
     Active Substance: GLIMEPIRIDE
     Indication: DIABETES MELLITUS
     Dosage: 2 MG, QD
     Dates: start: 201409
  4. METFORMIN [Concomitant]
     Active Substance: METFORMIN HYDROCHLORIDE
     Indication: DIABETES MELLITUS
     Dosage: 2-500 MG IN THE MORNING AND 2-500 MG IN THE AFTERNOON
  5. COLCHICINE. [Concomitant]
     Active Substance: COLCHICINE
     Indication: GOUT
     Dosage: ONE OR TWO A DAY
  6. LYRICA [Concomitant]
     Active Substance: PREGABALIN
     Indication: OSTEOARTHRITIS
     Dosage: 100 MG, TID

REACTIONS (2)
  - Hypotension [Unknown]
  - Malaise [Unknown]

NARRATIVE: CASE EVENT DATE: 201409
